FAERS Safety Report 7629506-9 (Version None)
Quarter: 2011Q3

REPORT INFORMATION
  Report Type: 
  Country: None (occurrence: None)
  Receive Date: 20110722
  Receipt Date: 20110715
  Transmission Date: 20111222
  Serious: Yes (Hospitalization, Other)
  Sender: FDA-Public Use
  Company Number: AT-ACTELION-A-CH2011-51122

PATIENT
  Sex: Female
  Weight: 63 kg

DRUGS (7)
  1. TRACLEER [Suspect]
     Dosage: UNK
     Route: 048
     Dates: start: 20100301, end: 20100401
  2. TRACLEER [Suspect]
     Indication: PULMONARY ARTERIAL HYPERTENSION
     Dosage: 125 MG, BID
     Route: 048
     Dates: start: 20100401, end: 20110630
  3. AMIODARONE HYDROCHLORIDE [Suspect]
     Dosage: UNK
     Dates: start: 20101101
  4. DILZEM [Concomitant]
  5. RAMIPRIL [Concomitant]
  6. LASILACTONE [Concomitant]
  7. PANTOPRAZOLE SODIUM [Concomitant]

REACTIONS (11)
  - VOMITING [None]
  - BLOOD BILIRUBIN INCREASED [None]
  - LIVER FUNCTION TEST ABNORMAL [None]
  - DIARRHOEA [None]
  - BLOOD LACTATE DEHYDROGENASE INCREASED [None]
  - LIVER INJURY [None]
  - BLOOD ALKALINE PHOSPHATASE INCREASED [None]
  - ALANINE AMINOTRANSFERASE INCREASED [None]
  - ASPARTATE AMINOTRANSFERASE INCREASED [None]
  - GAMMA-GLUTAMYLTRANSFERASE INCREASED [None]
  - NAUSEA [None]
